FAERS Safety Report 10525958 (Version 1)
Quarter: 2014Q4

REPORT INFORMATION
  Report Type: Spontaneous
  Country: FR (occurrence: FR)
  Receive Date: 20141017
  Receipt Date: 20141017
  Transmission Date: 20150528
  Serious: Yes (Death)
  Sender: FDA-Public Use
  Company Number: FR-GLAXOSMITHKLINE-FR2014GSK005389

PATIENT
  Age: 78 Year
  Sex: Male

DRUGS (11)
  1. UNKNOWN DRUG [Concomitant]
     Active Substance: UNSPECIFIED INGREDIENT
  2. ARIXTRA [Suspect]
     Active Substance: FONDAPARINUX SODIUM
     Indication: PRODUCT USED FOR UNKNOWN INDICATION
     Dosage: 2.5 MG, QD
     Route: 058
     Dates: start: 20130825
  3. KARDEGIC [Suspect]
     Active Substance: ASPIRIN LYSINE
     Indication: PRODUCT USED FOR UNKNOWN INDICATION
     Dosage: UNK
     Route: 048
     Dates: start: 20130824, end: 20130912
  4. ALTEISDUO [Concomitant]
     Active Substance: HYDROCHLOROTHIAZIDE\OLMESARTAN MEDOXOMIL
  5. INEXIUM [Concomitant]
     Active Substance: ESOMEPRAZOLE
  6. TIOTROPIUM [Concomitant]
     Active Substance: TIOTROPIUM
  7. ATROVENT [Concomitant]
     Active Substance: IPRATROPIUM BROMIDE
  8. ANTIBIOTICS NOS [Concomitant]
     Active Substance: UNSPECIFIED INGREDIENT
  9. LIPANTHYL [Concomitant]
     Active Substance: FENOFIBRATE
  10. FLECAINE [Concomitant]
     Active Substance: FLECAINIDE
  11. UVEDOSE [Concomitant]
     Active Substance: CHOLECALCIFEROL

REACTIONS (2)
  - Anaemia [Fatal]
  - Haemoptysis [Fatal]

NARRATIVE: CASE EVENT DATE: 20130912
